FAERS Safety Report 21522211 (Version 1)
Quarter: 2022Q4

REPORT INFORMATION
  Report Type: Spontaneous
  Country: AT (occurrence: AT)
  Receive Date: 20221028
  Receipt Date: 20221028
  Transmission Date: 20230113
  Serious: Yes (Hospitalization)
  Sender: FDA-Public Use
  Company Number: AT-BIOMARINAP-AT-2022-146445

PATIENT

DRUGS (1)
  1. VIMIZIM [Suspect]
     Active Substance: ELOSULFASE ALFA
     Indication: Product used for unknown indication
     Route: 042

REACTIONS (3)
  - Knee operation [Unknown]
  - Hip surgery [Unknown]
  - Pain [Unknown]

NARRATIVE: CASE EVENT DATE: 20221001
